FAERS Safety Report 11191434 (Version 2)
Quarter: 2015Q2

REPORT INFORMATION
  Report Type: Report from Study
  Country: GT (occurrence: GT)
  Receive Date: 20150616
  Receipt Date: 20150627
  Transmission Date: 20150821
  Serious: Yes (Death, Other)
  Sender: FDA-Public Use
  Company Number: PHHY2015GT071516

PATIENT
  Age: 71 Year
  Sex: Female

DRUGS (4)
  1. GLIVEC [Suspect]
     Active Substance: IMATINIB MESYLATE
     Dosage: 100 MG, UNK
     Route: 065
     Dates: start: 20150429, end: 2015
  2. ASCORBIC ACID. [Concomitant]
     Active Substance: ASCORBIC ACID
     Indication: PRODUCT USED FOR UNKNOWN INDICATION
     Dosage: 1000 MG, QD
     Dates: start: 20150429
  3. GLIVEC [Suspect]
     Active Substance: IMATINIB MESYLATE
     Indication: CHRONIC MYELOID LEUKAEMIA
     Dosage: 400 MG, UNK
     Route: 065
     Dates: start: 20130911, end: 20140409
  4. GLIVEC [Suspect]
     Active Substance: IMATINIB MESYLATE
     Dosage: 300 MG, UNK
     Route: 065
     Dates: start: 20140608, end: 2015

REACTIONS (8)
  - Death [Fatal]
  - Aplasia [Recovered/Resolved]
  - Aplasia [Recovered/Resolved]
  - Aplasia [Recovered/Resolved]
  - Aplasia [Recovered/Resolved]
  - Aplasia [Recovered/Resolved]
  - Malaise [Unknown]
  - Aplasia [Recovered/Resolved]

NARRATIVE: CASE EVENT DATE: 20140608
